FAERS Safety Report 10777069 (Version 4)
Quarter: 2015Q2

REPORT INFORMATION
  Report Type: Spontaneous
  Country: US (occurrence: US)
  Receive Date: 20150209
  Receipt Date: 20150505
  Transmission Date: 20150821
  Serious: No
  Sender: FDA-Public Use
  Company Number: US-PFIZER INC-2015049648

PATIENT
  Age: 75 Year
  Sex: Male
  Weight: 70 kg

DRUGS (3)
  1. ROBITUSSIN COUGH AND COLD CF MAX [Suspect]
     Active Substance: DEXTROMETHORPHAN HYDROBROMIDE\GUAIFENESIN\PHENYLEPHRINE HYDROCHLORIDE
     Indication: BRONCHITIS
     Dosage: 3 CUPS A DAY WHICH WAS THREE, 10 ML, ONE OR TWO TIMES, NO MORE THAN 3 TIMES A DAY (USUALLY TOOK IT T
     Dates: start: 201501, end: 2015
  2. DEXTROMETHORPHAN HBR, GUAIFENESIN [Suspect]
     Active Substance: ACETAMINOPHEN\DEXTROMETHORPHAN HYDROBROMIDE\PHENYLEPHRINE HYDROCHLORIDE
     Indication: BRONCHITIS
     Dosage: UNK
     Dates: end: 2015
  3. DILANTIN [Suspect]
     Active Substance: PHENYTOIN
     Indication: NERVOUS SYSTEM DISORDER
     Dosage: 100 MG CAPSULES, ALTERNATES 3 CAPSULES ONE DAY AND 4 CAPSULES THE NEXT
     Dates: start: 2014

REACTIONS (8)
  - Drug ineffective [Unknown]
  - Dry skin [Unknown]
  - Feeling hot [Recovering/Resolving]
  - Tremor [Unknown]
  - Speech disorder [Unknown]
  - Limb discomfort [Unknown]
  - Hyperhidrosis [Unknown]
  - Dehydration [Recovering/Resolving]

NARRATIVE: CASE EVENT DATE: 2015
